FAERS Safety Report 8608990-8 (Version None)
Quarter: 2012Q3

REPORT INFORMATION
  Report Type: 
  Country: None (occurrence: None)
  Receive Date: 20120821
  Receipt Date: 20120815
  Transmission Date: 20120928
  Serious: Yes (Hospitalization)
  Sender: FDA-Public Use
  Company Number: US-GLAXOSMITHKLINE-A0989703A

PATIENT
  Age: 77 Year
  Sex: Female

DRUGS (1)
  1. FLUTICASONE PROPIONATE [Suspect]
     Indication: DYSPNOEA
     Route: 055

REACTIONS (2)
  - DYSPHONIA [None]
  - PHARYNGEAL OPERATION [None]
